FAERS Safety Report 9219643 (Version 1)
Quarter: 2013Q1

REPORT INFORMATION
  Report Type: Spontaneous
  Country: US (occurrence: None)
  Receive Date: 20120830
  Receipt Date: 20120830
  Transmission Date: 20140127
  Serious: Yes (Other)
  Sender: FDA-Public Use
  Company Number: PHEH2012US008334

PATIENT
  Age: 64 Year
  Sex: Male

DRUGS (3)
  1. EXFORGE (VALSARTAN, AMLODIPINE) UNKNOWN [Suspect]
  2. METOPROLOL (METOPROLOL) [Concomitant]
  3. METFORMIN (METFORMIN) [Concomitant]

REACTIONS (4)
  - Atrial fibrillation [None]
  - Tachycardia [None]
  - Malaise [None]
  - Anxiety [None]
